FAERS Safety Report 19958852 (Version 1)
Quarter: 2021Q4

REPORT INFORMATION
  Report Type: Spontaneous
  Country: CN (occurrence: CN)
  Receive Date: 20211015
  Receipt Date: 20211015
  Transmission Date: 20220303
  Serious: Yes (Other)
  Sender: FDA-Public Use
  Company Number: CN-PFIZER INC-202101343088

PATIENT
  Age: 49 Year
  Sex: Male
  Weight: 62 kg

DRUGS (2)
  1. VENLAFAXINE HCL [Suspect]
     Active Substance: VENLAFAXINE HYDROCHLORIDE
     Indication: Depression
     Dosage: 150 MG, 1X/DAY
     Route: 048
     Dates: start: 20200818, end: 20210923
  2. VENLAFAXINE HCL [Suspect]
     Active Substance: VENLAFAXINE HYDROCHLORIDE
     Indication: Anxiety

REACTIONS (6)
  - Electrocardiogram QT prolonged [Recovering/Resolving]
  - Electrocardiogram PR shortened [Unknown]
  - Sinus tachycardia [Recovering/Resolving]
  - Bundle branch block right [Unknown]
  - Palpitations [Unknown]
  - Discomfort [Unknown]

NARRATIVE: CASE EVENT DATE: 20210923
